FAERS Safety Report 25721066 (Version 1)
Quarter: 2025Q3

REPORT INFORMATION
  Report Type: Spontaneous
  Country: CA (occurrence: None)
  Receive Date: 20250825
  Receipt Date: 20250825
  Transmission Date: 20251021
  Serious: Yes (Other)
  Sender: ORION
  Company Number: CA-PFIZER INC-202500167948

PATIENT
  Age: 33 Year
  Sex: Female

DRUGS (1)
  1. METHOTREXATE [Suspect]
     Active Substance: METHOTREXATE
     Indication: Prophylactic chemotherapy

REACTIONS (11)
  - Product use in unapproved indication [Unknown]
  - Back pain [Unknown]
  - Cytokine release syndrome [Unknown]
  - Disease progression [Unknown]
  - Hypogammaglobulinaemia [Unknown]
  - Immune effector cell-associated neurotoxicity syndrome [Unknown]
  - Mental status changes [Unknown]
  - Myelitis [Unknown]
  - Paralysis [Unknown]
  - Respiratory tract infection [Unknown]
  - Urinary retention [Unknown]
